FAERS Safety Report 9689811 (Version 2)
Quarter: 2014Q1

REPORT INFORMATION
  Report Type: Spontaneous
  Country: JP (occurrence: JP)
  Receive Date: 20131115
  Receipt Date: 20140121
  Transmission Date: 20141002
  Serious: Yes (Life-Threatening)
  Sender: FDA-Public Use
  Company Number: JP-BRISTOL-MYERS SQUIBB COMPANY-19799170

PATIENT
  Age: 55 Year
  Sex: Female
  Weight: 46 kg

DRUGS (8)
  1. ORENCIA FOR INJ 250 MG/VIAL [Suspect]
     Indication: RHEUMATOID ARTHRITIS
     Dosage: 28JNA11TO25FEB11:500-2/MONTH?25MAR13TO05SEP13: 500/MONTH
     Route: 042
     Dates: start: 20110325, end: 20130905
  2. VOLTAREN [Suspect]
     Route: 054
  3. PREDNISOLONE [Concomitant]
     Dosage: ONGOING?TABS
     Route: 048
  4. BLOPRESS [Concomitant]
     Dosage: TABS?ONGOING
     Route: 048
  5. ERYTHROMYCIN [Concomitant]
     Dosage: TABS?ONGOING
     Route: 048
  6. CARBOCISTEINE [Concomitant]
     Dosage: TABS?ONGOING
     Route: 048
  7. REBAMIPIDE [Concomitant]
     Dosage: TABS?ONGOING
     Route: 048
  8. FOSAMAC [Concomitant]
     Dosage: TABS?ONGOING
     Route: 048

REACTIONS (2)
  - Septic shock [Recovered/Resolved]
  - Bronchitis [Recovered/Resolved]
